FAERS Safety Report 13380428 (Version 6)
Quarter: 2017Q3

REPORT INFORMATION
  Report Type: Report from Study
  Country: US (occurrence: US)
  Receive Date: 20170329
  Receipt Date: 20170703
  Transmission Date: 20171127
  Serious: Yes (Hospitalization)
  Sender: FDA-Public Use
  Company Number: US-BIOGEN-2017BI00377702

PATIENT
  Age: 50 Year
  Sex: Female

DRUGS (2)
  1. ZINBRYTA [Suspect]
     Active Substance: DACLIZUMAB
     Route: 065
     Dates: start: 20170617
  2. ZINBRYTA [Suspect]
     Active Substance: DACLIZUMAB
     Indication: MULTIPLE SCLEROSIS
     Route: 058
     Dates: start: 20170218, end: 20170325

REACTIONS (4)
  - Tendon rupture [Recovered/Resolved]
  - Lyme disease [Recovered/Resolved]
  - Muscle rupture [Unknown]
  - Infection [Unknown]

NARRATIVE: CASE EVENT DATE: 20170316
